FAERS Safety Report 10154363 (Version 1)
Quarter: 2014Q2

REPORT INFORMATION
  Report Type: Spontaneous
  Country: GB (occurrence: None)
  Receive Date: 20140502
  Receipt Date: 20140502
  Transmission Date: 20141212
  Serious: Yes (Other)
  Sender: FDA-Public Use
  Company Number: 2014P1003597

PATIENT
  Age: 08 Year
  Sex: Male

DRUGS (1)
  1. VALPROATE  SODIUM [Suspect]
     Indication: EPILEPSY

REACTIONS (12)
  - Weight gain poor [None]
  - Mobility decreased [None]
  - Pain [None]
  - Osteopenia [None]
  - Femur fracture [None]
  - Clavicle fracture [None]
  - Rib fracture [None]
  - Status epilepticus [None]
  - Tetany [None]
  - Renal failure acute [None]
  - Renal tubular disorder [None]
  - Blood alkaline phosphatase increased [None]
